FAERS Safety Report 25660076 (Version 1)
Quarter: 2025Q3

REPORT INFORMATION
  Report Type: Spontaneous
  Country: EU (occurrence: EU)
  Receive Date: 20250808
  Receipt Date: 20250808
  Transmission Date: 20251020
  Serious: Yes (Other)
  Sender: PFIZER
  Company Number: None

PATIENT
  Age: 76 Year
  Sex: Female

DRUGS (1)
  1. LORLATINIB [Suspect]
     Active Substance: LORLATINIB
     Indication: Non-small cell lung cancer
     Dosage: 100 MG, DAILY (Q24H)
     Route: 048
     Dates: start: 20250723, end: 20250730

REACTIONS (2)
  - Hallucination, visual [Recovering/Resolving]
  - Mood altered [Recovering/Resolving]

NARRATIVE: CASE EVENT DATE: 20250730
